FAERS Safety Report 14097480 (Version 1)
Quarter: 2017Q4

REPORT INFORMATION
  Report Type: Spontaneous
  Country: US (occurrence: US)
  Receive Date: 20171017
  Receipt Date: 20171017
  Transmission Date: 20180321
  Serious: Yes (Other)
  Sender: FDA-Public Use
  Company Number: US-VISTAPHARM, INC.-VER201710-000890

PATIENT

DRUGS (2)
  1. MORPHINE [Suspect]
     Active Substance: MORPHINE
     Indication: PAIN
  2. CLONIDINE. [Concomitant]
     Active Substance: CLONIDINE
     Indication: PAIN MANAGEMENT

REACTIONS (4)
  - Pain [Recovering/Resolving]
  - Dementia [Unknown]
  - Treatment failure [Unknown]
  - Loss of personal independence in daily activities [Recovering/Resolving]
